FAERS Safety Report 19385374 (Version 3)
Quarter: 2021Q2

REPORT INFORMATION
  Report Type: Spontaneous
  Country: DE (occurrence: DE)
  Receive Date: 20210608
  Receipt Date: 20210621
  Transmission Date: 20210717
  Serious: Yes (Other)
  Sender: FDA-Public Use
  Company Number: DE-BEH-2020121614

PATIENT
  Age: 30 Year
  Sex: Female
  Weight: 140 kg

DRUGS (3)
  1. RHOPHYLAC [Suspect]
     Active Substance: HUMAN RHO(D) IMMUNE GLOBULIN
     Indication: PROPHYLAXIS
     Dosage: 2 MILLILITER
     Route: 030
     Dates: start: 20200819
  2. RHOPHYLAC [Suspect]
     Active Substance: HUMAN RHO(D) IMMUNE GLOBULIN
     Indication: PROPHYLAXIS
     Dosage: 2 MILLILITER
     Route: 030
     Dates: start: 20200819
  3. INSULIN [Concomitant]
     Active Substance: INSULIN NOS

REACTIONS (5)
  - No adverse event [Recovered/Resolved]
  - Exposure during pregnancy [Unknown]
  - Postpartum haemorrhage [Unknown]
  - Wrong patient received product [Recovered/Resolved]
  - Exposure during pregnancy [Recovered/Resolved]
